FAERS Safety Report 16641999 (Version 3)
Quarter: 2019Q3

REPORT INFORMATION
  Report Type: Spontaneous
  Country: JP (occurrence: JP)
  Receive Date: 20190729
  Receipt Date: 20190913
  Transmission Date: 20191004
  Serious: Yes (Death, Life-Threatening, Hospitalization, Other)
  Sender: FDA-Public Use
  Company Number: JP-009507513-1907JPN002675J

PATIENT
  Age: 70 Year
  Sex: Male
  Weight: 46 kg

DRUGS (4)
  1. CISPLATIN. [Suspect]
     Active Substance: CISPLATIN
     Indication: NON-SMALL CELL LUNG CANCER
     Dosage: 110 MILLIGRAM
     Route: 041
     Dates: start: 20190709, end: 20190709
  2. KEYTRUDA [Suspect]
     Active Substance: PEMBROLIZUMAB
     Indication: NON-SMALL CELL LUNG CANCER
     Dosage: 200 MILLIGRAM, Q3W
     Route: 041
     Dates: start: 20190709, end: 20190709
  3. ALIMTA [Suspect]
     Active Substance: PEMETREXED DISODIUM
     Indication: NON-SMALL CELL LUNG CANCER
     Dosage: 739 MILLIGRAM
     Route: 041
     Dates: start: 20190709, end: 20190709
  4. OXYCODONE [Concomitant]
     Active Substance: OXYCODONE
     Indication: ANALGESIC THERAPY
     Dosage: 15 MILLIGRAM, BID
     Route: 048
     Dates: start: 20190624, end: 20190709

REACTIONS (5)
  - Disseminated intravascular coagulation [Unknown]
  - Febrile neutropenia [Recovered/Resolved]
  - Cerebral infarction [Not Recovered/Not Resolved]
  - Pneumonia aspiration [Fatal]
  - Interstitial lung disease [Not Recovered/Not Resolved]

NARRATIVE: CASE EVENT DATE: 20190716
